FAERS Safety Report 5379384-6 (Version None)
Quarter: 2007Q3

REPORT INFORMATION
  Report Type: 
  Country: None (occurrence: None)
  Receive Date: 20070703
  Receipt Date: 20070623
  Transmission Date: 20080115
  Serious: Yes (Hospitalization)
  Sender: FDA-Public Use
  Company Number: S07-USA-01882-01

PATIENT
  Age: 51 Year
  Sex: Male
  Weight: 80.2867 kg

DRUGS (6)
  1. LEXAPRO [Suspect]
     Indication: POST-TRAUMATIC STRESS DISORDER
     Dosage: 20 MG BID PO
     Route: 048
     Dates: start: 20030901, end: 20050801
  2. COREG [Concomitant]
  3. ZOCOR [Concomitant]
  4. XANAX [Concomitant]
  5. BUSPAR [Concomitant]
  6. SEROQUEL [Concomitant]

REACTIONS (13)
  - AMNESIA [None]
  - ASTHENIA [None]
  - COMA [None]
  - DIZZINESS [None]
  - FALL [None]
  - FEELING ABNORMAL [None]
  - HYPONATRAEMIA [None]
  - PANIC ATTACK [None]
  - RETCHING [None]
  - ROAD TRAFFIC ACCIDENT [None]
  - SENSATION OF HEAVINESS [None]
  - VOMITING [None]
  - WEIGHT DECREASED [None]
